FAERS Safety Report 7317010-7 (Version None)
Quarter: 2011Q1

REPORT INFORMATION
  Report Type: 
  Country: None (occurrence: None)
  Receive Date: 20110226
  Receipt Date: 20100914
  Transmission Date: 20110831
  Serious: No
  Sender: FDA-Public Use
  Company Number: US-ALLERGAN-1011917US

PATIENT
  Age: 63 Year
  Sex: Female

DRUGS (1)
  1. BOTOXA? [Suspect]
     Indication: SKIN WRINKLING
     Dosage: 80 UNITS PER BAND, SINGLE
     Route: 030
     Dates: start: 20100616, end: 20100616

REACTIONS (1)
  - DYSPHONIA [None]
